FAERS Safety Report 5792776-6 (Version None)
Quarter: 2008Q2

REPORT INFORMATION
  Report Type: 
  Country: None (occurrence: None)
  Receive Date: 20080624
  Receipt Date: 20080609
  Transmission Date: 20081010
  Serious: Yes (Hospitalization)
  Sender: FDA-Public Use
  Company Number: 2008BI010376

PATIENT
  Age: 41 Year
  Sex: Male
  Weight: 113.3993 kg

DRUGS (1)
  1. TYSABRI [Suspect]
     Indication: MULTIPLE SCLEROSIS
     Dosage: 300 MG; QM; IV
     Route: 042
     Dates: start: 20061025

REACTIONS (19)
  - ATAXIA [None]
  - CANDIDIASIS [None]
  - COLITIS [None]
  - COLONIC STENOSIS [None]
  - CROHN'S DISEASE [None]
  - CULTURE POSITIVE [None]
  - DRUG INEFFECTIVE [None]
  - ESCHERICHIA INFECTION [None]
  - FATIGUE [None]
  - FLUID RETENTION [None]
  - GASTROINTESTINAL DISORDER [None]
  - GASTROINTESTINAL HAEMORRHAGE [None]
  - MULTIPLE SCLEROSIS [None]
  - NEUROLOGICAL SYMPTOM [None]
  - PERITONITIS [None]
  - POST PROCEDURAL SEPSIS [None]
  - SKIN GRAFT [None]
  - STREPTOCOCCAL INFECTION [None]
  - WOUND DEHISCENCE [None]
